FAERS Safety Report 4849766-7 (Version None)
Quarter: 2005Q4

REPORT INFORMATION
  Report Type: 
  Country: None (occurrence: None)
  Receive Date: 20051107
  Receipt Date: 20050228
  Transmission Date: 20060501
  Serious: Yes (Hospitalization)
  Sender: FDA-Public Use
  Company Number: MK200503-0013-1

PATIENT
  Age: 58 Year
  Sex: Male

DRUGS (1)
  1. MD-GASTROVIEW [Suspect]
     Indication: COMPUTERISED TOMOGRAM ABDOMEN
     Dosage: 10 ML, ONE TIME, PO
     Route: 048

REACTIONS (5)
  - ANAPHYLACTOID REACTION [None]
  - DYSPNOEA [None]
  - OEDEMA [None]
  - RESPIRATORY FAILURE [None]
  - RESPIRATORY RATE INCREASED [None]
